FAERS Safety Report 24236203 (Version 1)
Quarter: 2024Q3

REPORT INFORMATION
  Report Type: Report from Study
  Country: US (occurrence: None)
  Receive Date: 20240822
  Receipt Date: 20240822
  Transmission Date: 20241016
  Serious: Yes (Hospitalization, Other)
  Sender: ASTRAZENECA
  Company Number: 2023A180495

PATIENT
  Sex: Female

DRUGS (1)
  1. BYDUREON BCISE [Suspect]
     Active Substance: EXENATIDE

REACTIONS (11)
  - Renal failure [Unknown]
  - Allergy to vaccine [Unknown]
  - Back pain [Unknown]
  - Back disorder [Unknown]
  - Neuropathy peripheral [Unknown]
  - Fungal infection [Unknown]
  - Gait disturbance [Unknown]
  - Burning sensation [Unknown]
  - Dyspnoea [Unknown]
  - Pain in extremity [Unknown]
  - Ingrowing nail [Unknown]
